FAERS Safety Report 4899667-3 (Version None)
Quarter: 2006Q1

REPORT INFORMATION
  Report Type: 
  Country: None (occurrence: None)
  Receive Date: 20060131
  Receipt Date: 20060125
  Transmission Date: 20060701
  Serious: Yes (Other)
  Sender: FDA-Public Use
  Company Number: 28448

PATIENT
  Age: 65 Year
  Sex: Female

DRUGS (1)
  1. ALDARA [Suspect]
     Indication: ACTINIC KERATOSIS
     Dosage: 1 IN 1 DAY(S)) TOPICAL
     Route: 061
     Dates: start: 20051101, end: 20051101

REACTIONS (1)
  - CUTANEOUS LUPUS ERYTHEMATOSUS [None]
